FAERS Safety Report 9766988 (Version 1)
Quarter: 2013Q4

REPORT INFORMATION
  Report Type: Spontaneous
  Country: IT (occurrence: IT)
  Receive Date: 20131217
  Receipt Date: 20131217
  Transmission Date: 20140711
  Serious: Yes (Hospitalization)
  Sender: FDA-Public Use
  Company Number: IT-BAYER-2013-150433

PATIENT
  Age: 71 Year
  Sex: Male

DRUGS (4)
  1. CARDIOASPIRIN [Suspect]
     Indication: ATRIAL FIBRILLATION
     Dosage: 100 MG, DAILY DOSE
     Route: 048
     Dates: start: 20130101, end: 20130601
  2. COUMADIN [Suspect]
     Indication: ATRIAL FIBRILLATION
     Dosage: 1 DF, PRN
     Route: 048
     Dates: start: 20130101, end: 20130601
  3. MICARDISPLUS [Concomitant]
  4. URODIE [Concomitant]
     Dosage: UNK

REACTIONS (3)
  - Cerebral haemorrhage [Recovered/Resolved]
  - Muscular weakness [Recovered/Resolved]
  - Dysarthria [Recovered/Resolved]
